FAERS Safety Report 8157240-8 (Version None)
Quarter: 2012Q1

REPORT INFORMATION
  Report Type: 
  Country: None (occurrence: None)
  Receive Date: 20120222
  Receipt Date: 20120222
  Transmission Date: 20120608
  Serious: Yes (Hospitalization)
  Sender: FDA-Public Use
  Company Number: None

PATIENT
  Sex: Female

DRUGS (2)
  1. PRADAXA [Suspect]
     Indication: CEREBROVASCULAR DISORDER
     Dosage: 150MG
     Route: 048
     Dates: start: 20111111, end: 20120220
  2. PRADAXA [Suspect]
     Indication: MICROANGIOPATHY
     Dosage: 150MG
     Route: 048
     Dates: start: 20111111, end: 20120220

REACTIONS (4)
  - PROTHROMBIN TIME PROLONGED [None]
  - ACTIVATED PARTIAL THROMBOPLASTIN TIME PROLONGED [None]
  - GASTROINTESTINAL HAEMORRHAGE [None]
  - ANAEMIA [None]
